FAERS Safety Report 16958710 (Version 1)
Quarter: 2019Q4

REPORT INFORMATION
  Report Type: Spontaneous
  Country: GB (occurrence: GB)
  Receive Date: 20191024
  Receipt Date: 20191024
  Transmission Date: 20200122
  Serious: Yes (Other)
  Sender: FDA-Public Use
  Company Number: NVSC2019GB014709

PATIENT
  Age: 23 Year
  Sex: Male

DRUGS (3)
  1. ENTRESTO [Suspect]
     Active Substance: SACUBITRIL\VALSARTAN
     Dosage: 50 MG (24/26), BID
     Route: 065
     Dates: start: 201810
  2. ENTRESTO [Suspect]
     Active Substance: SACUBITRIL\VALSARTAN
     Dosage: 200 MG, BID
     Route: 065
     Dates: start: 201812
  3. ENTRESTO [Suspect]
     Active Substance: SACUBITRIL\VALSARTAN
     Indication: CARDIAC FAILURE
     Dosage: 100 MG (49/51), BID
     Route: 065

REACTIONS (7)
  - Ejection fraction decreased [Unknown]
  - Dyspnoea paroxysmal nocturnal [Unknown]
  - Left ventricular dysfunction [Unknown]
  - Palpitations [Unknown]
  - Dyspnoea [Unknown]
  - Orthopnoea [Unknown]
  - Congestive cardiomyopathy [Unknown]
